FAERS Safety Report 25675851 (Version 1)
Quarter: 2025Q3

REPORT INFORMATION
  Report Type: Spontaneous
  Country: US (occurrence: US)
  Receive Date: 20250813
  Receipt Date: 20250813
  Transmission Date: 20251021
  Serious: Yes (Other)
  Sender: CHEPLAPHARM
  Company Number: US-ROCHE-3510135

PATIENT
  Age: 66 Year
  Sex: Female
  Weight: 58.509 kg

DRUGS (6)
  1. CLONAZEPAM [Suspect]
     Active Substance: CLONAZEPAM
     Indication: Systemic lupus erythematosus
  2. CLONAZEPAM [Suspect]
     Active Substance: CLONAZEPAM
     Indication: Systemic lupus erythematosus
  3. RITUXAN [Suspect]
     Active Substance: RITUXIMAB
     Indication: Rheumatoid arthritis
     Dosage: ONCE IN 2 WEEKS THAN EVERY 6 MONTHS/ANTICIPATED DATE OF TREATMENT; 10/3/2023
     Route: 042
     Dates: start: 2023
  4. RITUXAN [Suspect]
     Active Substance: RITUXIMAB
     Indication: Systemic lupus erythematosus
     Dosage: ONCE IN 2 WEEKS THAN EVERY 6 MONTHS/ANTICIPATED DATE OF TREATMENT; 10/3/2023
     Route: 042
     Dates: start: 2023
  5. RITUXAN [Suspect]
     Active Substance: RITUXIMAB
     Indication: Rheumatoid arthritis
     Dosage: ONCE IN 2 WEEKS THAN EVERY 6 MONTHS
     Route: 042
     Dates: end: 202112
  6. RITUXAN [Suspect]
     Active Substance: RITUXIMAB
     Indication: Systemic lupus erythematosus
     Dosage: ONCE IN 2 WEEKS THAN EVERY 6 MONTHS
     Route: 042
     Dates: end: 202112

REACTIONS (16)
  - Breast cancer [Not Recovered/Not Resolved]
  - Mycotoxicosis [Not Recovered/Not Resolved]
  - Fall [Unknown]
  - Dizziness [Not Recovered/Not Resolved]
  - Hypertension [Not Recovered/Not Resolved]
  - Concussion [Unknown]
  - Chills [Recovered/Resolved]
  - Hyperhidrosis [Recovered/Resolved]
  - Bone pain [Recovered/Resolved]
  - Confusional state [Not Recovered/Not Resolved]
  - Melanocytic naevus [Unknown]
  - Brain fog [Not Recovered/Not Resolved]
  - Herpes zoster [Recovered/Resolved]
  - Renal disorder [Not Recovered/Not Resolved]
  - Drug hypersensitivity [Unknown]
  - Off label use [Unknown]

NARRATIVE: CASE EVENT DATE: 20230101
